FAERS Safety Report 22028691 (Version 2)
Quarter: 2023Q1

REPORT INFORMATION
  Report Type: Spontaneous
  Country: CH (occurrence: None)
  Receive Date: 20230223
  Receipt Date: 20230303
  Transmission Date: 20230418
  Serious: No
  Sender: FDA-Public Use
  Company Number: 2023A041376

PATIENT
  Sex: Male

DRUGS (8)
  1. BUDESONIDE\FORMOTEROL\GLYCOPYRRONIUM [Suspect]
     Active Substance: BUDESONIDE\FORMOTEROL\GLYCOPYRRONIUM
     Indication: Chronic obstructive pulmonary disease
     Dosage: 5/7.2/160 UG, TWO PUFFS IN THE MORNING AND IN THE EVENING WITH 12 HOURS BETWEEN EACH OTHER
     Route: 055
  2. ATORVASTATIN [Concomitant]
     Active Substance: ATORVASTATIN
     Indication: Blood pressure measurement
     Dosage: 5.0MG UNKNOWN
     Route: 048
  3. LANSOPRAZOLE [Concomitant]
     Active Substance: LANSOPRAZOLE
     Indication: Gastrooesophageal reflux disease
     Dosage: 30.0MG UNKNOWN
  4. DUTASTERIDE [Concomitant]
     Active Substance: DUTASTERIDE
     Indication: Prostatomegaly
  5. MOMETASONE [Concomitant]
     Active Substance: MOMETASONE
     Indication: Sinusitis
  6. ASPIRIN [Concomitant]
     Active Substance: ASPIRIN
     Indication: Sinusitis
  7. BETULA PENDULA POLLEN [Concomitant]
     Active Substance: BETULA PENDULA POLLEN
  8. AMLODIPINE BESYLATE\OLMESARTAN MEDOXOMIL [Concomitant]
     Active Substance: AMLODIPINE BESYLATE\OLMESARTAN MEDOXOMIL
     Dosage: 40/10

REACTIONS (1)
  - No adverse event [Unknown]
